FAERS Safety Report 21949318 (Version 1)
Quarter: 2023Q1

REPORT INFORMATION
  Report Type: Spontaneous
  Country: HR (occurrence: HR)
  Receive Date: 20230203
  Receipt Date: 20230203
  Transmission Date: 20230418
  Serious: Yes (Other)
  Sender: FDA-Public Use
  Company Number: None

PATIENT
  Age: 14 Year
  Sex: Male
  Weight: 50 kg

DRUGS (2)
  1. CLONAZEPAM [Suspect]
     Active Substance: CLONAZEPAM
     Indication: Suicide attempt
     Dosage: 30 TBL?DAILY DOSE: 15 MILLIGRAM
     Route: 048
     Dates: start: 20221205, end: 20221205
  2. FEVARIN [Suspect]
     Active Substance: FLUVOXAMINE MALEATE
     Indication: Suicide attempt
     Dosage: 30 TBL?DAILY DOSE: 3 GRAM
     Route: 048
     Dates: start: 20221205, end: 20221205

REACTIONS (4)
  - Loss of consciousness [Unknown]
  - Somnolence [Unknown]
  - Suicide attempt [Unknown]
  - Intentional overdose [Unknown]

NARRATIVE: CASE EVENT DATE: 20221205
